FAERS Safety Report 20980612 (Version 3)
Quarter: 2022Q3

REPORT INFORMATION
  Report Type: Spontaneous
  Country: US (occurrence: US)
  Receive Date: 20220620
  Receipt Date: 20220804
  Transmission Date: 20221027
  Serious: Yes (Other)
  Sender: FDA-Public Use
  Company Number: US-Hikma Pharmaceuticals USA Inc.-US-H14001-22-01507

PATIENT
  Age: 71 Year
  Sex: Female

DRUGS (4)
  1. CYANOCOBALAMIN [Suspect]
     Active Substance: CYANOCOBALAMIN
     Indication: Pernicious anaemia
     Route: 030
     Dates: start: 20220503
  2. CYANOCOBALAMIN [Suspect]
     Active Substance: CYANOCOBALAMIN
     Route: 030
     Dates: end: 20220524
  3. CALCIUM [Concomitant]
     Active Substance: CALCIUM
     Indication: Product used for unknown indication
     Dosage: UNKNOWN
     Route: 065
  4. SELENIUM [Concomitant]
     Active Substance: SELENIUM
     Indication: Product used for unknown indication
     Dosage: UNKNOWN
     Route: 065

REACTIONS (18)
  - Fatigue [Recovering/Resolving]
  - Memory impairment [Recovering/Resolving]
  - Palpitations [Unknown]
  - Dyspnoea [Not Recovered/Not Resolved]
  - Neuropathy peripheral [Recovering/Resolving]
  - Muscle spasticity [Recovered/Resolved]
  - Angina pectoris [Recovering/Resolving]
  - Atrial fibrillation [Recovered/Resolved]
  - Erythema [Recovered/Resolved]
  - Pruritus [Recovering/Resolving]
  - Blood cholesterol increased [Unknown]
  - Liver function test abnormal [Unknown]
  - Blood alkaline phosphatase abnormal [Unknown]
  - Tinnitus [Recovering/Resolving]
  - Head discomfort [Recovering/Resolving]
  - Low density lipoprotein increased [Unknown]
  - General physical condition abnormal [Recovered/Resolved]
  - Drug ineffective [Unknown]

NARRATIVE: CASE EVENT DATE: 20220517
